FAERS Safety Report 5526460-0 (Version None)
Quarter: 2007Q4

REPORT INFORMATION
  Report Type: 
  Country: None (occurrence: None)
  Receive Date: 20071127
  Receipt Date: 20071116
  Transmission Date: 20080405
  Serious: Yes (Other)
  Sender: FDA-Public Use
  Company Number: JP-JNJFOC-20071107106

PATIENT
  Age: 2 Year

DRUGS (2)
  1. RISPERDAL [Suspect]
     Indication: CEREBRAL PALSY
     Route: 048
  2. VALPROATE SODIUM [Concomitant]
     Route: 048

REACTIONS (3)
  - HYPERTHERMIA [None]
  - OFF LABEL USE [None]
  - WHITE BLOOD CELL COUNT DECREASED [None]
